FAERS Safety Report 9606695 (Version 2)
Quarter: 2013Q4

REPORT INFORMATION
  Report Type: Spontaneous
  Country: US (occurrence: US)
  Receive Date: 20131008
  Receipt Date: 20131008
  Transmission Date: 20140711
  Serious: No
  Sender: FDA-Public Use
  Company Number: US-AMGEN-USASP2013055489

PATIENT
  Age: 56 Year
  Sex: Female
  Weight: 66.21 kg

DRUGS (5)
  1. PROLIA [Suspect]
     Indication: OSTEOPOROSIS POSTMENOPAUSAL
     Dosage: 1 DF, Q6MO
     Route: 030
     Dates: start: 20130717
  2. METOPROLOL SUCCINATE [Concomitant]
     Dosage: UNK
     Dates: start: 20121107
  3. OXYCODONE [Concomitant]
     Dosage: UNK
     Dates: start: 201105
  4. ALPRAZOLAM [Concomitant]
     Dosage: UNK
     Dates: start: 201109
  5. NEXIUM                             /01479302/ [Concomitant]

REACTIONS (5)
  - Dry eye [Recovered/Resolved]
  - Eye irritation [Recovered/Resolved]
  - Ocular hyperaemia [Recovered/Resolved]
  - Photophobia [Recovered/Resolved]
  - Headache [Recovered/Resolved]
